FAERS Safety Report 25759174 (Version 1)
Quarter: 2025Q3

REPORT INFORMATION
  Report Type: Spontaneous
  Country: US (occurrence: US)
  Receive Date: 20250904
  Receipt Date: 20250904
  Transmission Date: 20251021
  Serious: Yes (Other)
  Sender: BOSTON SCIENTIFIC
  Company Number: US-BSC-2025000043

PATIENT
  Sex: Male

DRUGS (1)
  1. VARITHENA [Suspect]
     Active Substance: POLIDOCANOL
     Indication: Product used for unknown indication
     Dates: start: 202503

REACTIONS (2)
  - Deep vein thrombosis [Recovered/Resolved]
  - Peripheral vein thrombus extension [Recovered/Resolved]

NARRATIVE: CASE EVENT DATE: 20250407
